FAERS Safety Report 9746509 (Version 2)
Quarter: 2014Q1

REPORT INFORMATION
  Report Type: Spontaneous
  Country: EE (occurrence: EE)
  Receive Date: 20131211
  Receipt Date: 20140211
  Transmission Date: 20141002
  Serious: Yes (Hospitalization, Other)
  Sender: FDA-Public Use
  Company Number: EE-ACTELION-A-CH2013-92086

PATIENT
  Age: 24 Year
  Sex: Female
  Weight: 48 kg

DRUGS (3)
  1. TRACLEER [Suspect]
     Indication: PULMONARY ARTERIAL HYPERTENSION
     Dosage: UNK
     Route: 048
     Dates: start: 20111128, end: 20140129
  2. SILDENAFIL [Suspect]
     Dosage: 20 MG, TID
     Route: 048
     Dates: start: 20080521
  3. OXYGEN [Concomitant]
     Dosage: UNK
     Dates: start: 20111128

REACTIONS (6)
  - Viral infection [Recovered/Resolved]
  - Headache [Unknown]
  - General physical health deterioration [Recovered/Resolved]
  - Pyrexia [Recovered/Resolved]
  - Cardiac failure [Recovered/Resolved]
  - N-terminal prohormone brain natriuretic peptide [Recovered/Resolved]
